FAERS Safety Report 24924457 (Version 1)
Quarter: 2025Q1

REPORT INFORMATION
  Report Type: Spontaneous
  Country: US (occurrence: US)
  Receive Date: 20250204
  Receipt Date: 20250204
  Transmission Date: 20250409
  Serious: Yes (Death, Other)
  Sender: AMGEN
  Company Number: US-AMGEN-USASP2025019223

PATIENT
  Age: 27 Year
  Sex: Male

DRUGS (8)
  1. PREDNISONE [Suspect]
     Active Substance: PREDNISONE
     Indication: Myocarditis
     Dosage: 10 MILLIGRAM, QD
     Route: 048
  2. METHYLPREDNISOLONE [Concomitant]
     Active Substance: METHYLPREDNISOLONE
     Indication: Myocarditis
     Route: 065
  3. METHYLPREDNISOLONE [Concomitant]
     Active Substance: METHYLPREDNISOLONE
     Dosage: 80 MILLIGRAM, QD
     Route: 065
  4. METHYLPREDNISOLONE [Concomitant]
     Active Substance: METHYLPREDNISOLONE
     Route: 065
  5. AMIODARONE [Concomitant]
     Active Substance: AMIODARONE
     Indication: Myocarditis
     Dosage: 200 MILLIGRAM, BID
     Route: 065
  6. METOPROLOL SUCCINATE [Concomitant]
     Active Substance: METOPROLOL SUCCINATE
     Indication: Myocarditis
     Dosage: 25 MILLIGRAM, QD
     Route: 065
  7. ENTRECTINIB [Concomitant]
     Active Substance: ENTRECTINIB
     Indication: Lung adenocarcinoma
     Dosage: 600 MILLIGRAM, QD
     Route: 048
  8. LIDOCAINE [Concomitant]
     Active Substance: LIDOCAINE
     Route: 065

REACTIONS (5)
  - Death [Fatal]
  - Ejection fraction decreased [Unknown]
  - Lung adenocarcinoma [Unknown]
  - Pericardial effusion malignant [Unknown]
  - Off label use [Unknown]
